FAERS Safety Report 16999776 (Version 1)
Quarter: 2019Q4

REPORT INFORMATION
  Report Type: Spontaneous
  Country: DE (occurrence: DE)
  Receive Date: 20191106
  Receipt Date: 20191106
  Transmission Date: 20200122
  Serious: Yes (Death, Other)
  Sender: FDA-Public Use
  Company Number: DE-TEVA-2019-DE-1132361

PATIENT
  Age: 63 Year
  Sex: Male

DRUGS (1)
  1. CAPECITABINE. [Suspect]
     Active Substance: CAPECITABINE
     Indication: RECTAL CANCER
     Dosage: ADDITIONAL INFO: ACTION TAKEN: THERAPY COMPLETED
     Route: 065
     Dates: start: 201606, end: 201609

REACTIONS (3)
  - Pneumonia aspiration [Fatal]
  - Leukoencephalopathy [Unknown]
  - Upper motor neurone lesion [Unknown]

NARRATIVE: CASE EVENT DATE: 201903
